FAERS Safety Report 5009738-9 (Version None)
Quarter: 2006Q2

REPORT INFORMATION
  Report Type: 
  Country: None (occurrence: None)
  Receive Date: 20060522
  Receipt Date: 20060510
  Transmission Date: 20061013
  Serious: Yes (Other)
  Sender: FDA-Public Use
  Company Number: 2006063412

PATIENT

DRUGS (2)
  1. VFEND [Suspect]
     Indication: SYSTEMIC ANTIFUNGAL TREATMENT
     Dosage: 200 MG, INTRAVENOUS
     Route: 042
  2. AMBISOME [Suspect]
     Indication: SYSTEMIC ANTIFUNGAL TREATMENT

REACTIONS (2)
  - HALLUCINATION [None]
  - SUICIDAL IDEATION [None]
